FAERS Safety Report 9869282 (Version 1)
Quarter: 2014Q1

REPORT INFORMATION
  Report Type: Spontaneous
  Country: US (occurrence: US)
  Receive Date: 20140205
  Receipt Date: 20140205
  Transmission Date: 20141002
  Serious: No
  Sender: FDA-Public Use
  Company Number: US-B.I. PHARMACEUTICALS,INC./RIDGEFIELD-2014-BI-03790BP

PATIENT
  Age: 78 Year
  Sex: Female
  Weight: 64 kg

DRUGS (16)
  1. COMBIVENT [Suspect]
     Indication: BRONCHITIS
     Dosage: STRENGTH: 18 MCG / 103 MCG; DAILY DOSE: 144 MCG/824 MCG
     Route: 055
     Dates: start: 20131228, end: 20140123
  2. PRILOSEC [Concomitant]
     Indication: GASTROOESOPHAGEAL REFLUX DISEASE
     Dosage: 20 MG
     Route: 048
     Dates: start: 2010
  3. RESTASIS [Concomitant]
     Indication: DRY EYE
     Dosage: STRENGTH: 2 DROPS EACH EYE; DAILY DOSE: 8 DROPS
     Dates: start: 2011
  4. MOBIC [Concomitant]
     Indication: ARTHRITIS
     Route: 048
     Dates: start: 2011
  5. BACTRIM DS [Concomitant]
     Indication: URINARY TRACT INFECTION
     Dosage: STRENGTH: 400-80 MG; DAILY DOSE: 400-80 MG
     Route: 048
     Dates: start: 2013
  6. CELEXA [Concomitant]
     Indication: DEPRESSION
     Dosage: 20 MG
     Route: 048
  7. AMITRIPTYLINE [Concomitant]
     Indication: INSOMNIA
     Dosage: 10 MG
     Route: 048
  8. FLONASE [Concomitant]
     Indication: SEASONAL ALLERGY
     Dosage: FORMULATION: NASAL SPRAY; STRENGTH: 1 SPRAY EACH NOSTRIL; DAILY DOSE: 4 SPRAYS
     Route: 045
  9. VOLTARIN GEL 1% [Concomitant]
     Indication: ARTHRITIS
     Route: 061
  10. VITAMIN D3 [Concomitant]
     Indication: SUPPLEMENTATION THERAPY
     Dosage: 2000 U
     Route: 048
  11. VITAMIN B COMPLEX [Concomitant]
     Indication: SUPPLEMENTATION THERAPY
     Dosage: 1 ANZ
     Route: 048
  12. CALCIUM [Concomitant]
     Indication: MINERAL SUPPLEMENTATION
     Dosage: 1200 MG
     Route: 048
  13. MELATONIN [Concomitant]
     Indication: SLEEP DISORDER
     Route: 048
  14. CAFFEINE [Concomitant]
     Indication: HYPERVIGILANCE
     Dosage: 200 MG
     Route: 048
  15. MAGNESIUM OXIDE [Concomitant]
     Indication: SUPPLEMENTATION THERAPY
     Dosage: 400 MG
     Route: 048
  16. ROBITUSSIN [Concomitant]
     Indication: COUGH
     Route: 048

REACTIONS (4)
  - Oral pain [Recovered/Resolved]
  - Pyrexia [Recovered/Resolved]
  - Cough [Recovered/Resolved]
  - Off label use [Recovered/Resolved]
